FAERS Safety Report 8536871-7 (Version None)
Quarter: 2012Q3

REPORT INFORMATION
  Report Type: 
  Country: None (occurrence: None)
  Receive Date: 20120725
  Receipt Date: 20120712
  Transmission Date: 20120928
  Serious: Yes (Other)
  Sender: FDA-Public Use
  Company Number: JP-BAYER-2012-070085

PATIENT
  Age: 40 Year
  Sex: Female

DRUGS (2)
  1. NORVASC [Concomitant]
     Indication: HYPERTENSION
     Route: 048
  2. YAZ [Suspect]
     Indication: DYSMENORRHOEA
     Dosage: 1 DF, QD
     Route: 048
     Dates: start: 20110624, end: 20120516

REACTIONS (4)
  - NAUSEA [None]
  - INTRACRANIAL VENOUS SINUS THROMBOSIS [None]
  - HEADACHE [None]
  - CEREBRAL HAEMORRHAGE [None]
